FAERS Safety Report 7231343-4 (Version None)
Quarter: 2011Q1

REPORT INFORMATION
  Report Type: 
  Country: None (occurrence: None)
  Receive Date: 20110118
  Receipt Date: 20110108
  Transmission Date: 20110831
  Serious: Yes (Hospitalization)
  Sender: FDA-Public Use
  Company Number: ES-ABBOTT-10P-144-0691907-03

PATIENT
  Age: 44 Year
  Sex: Female

DRUGS (4)
  1. AZATHIOPRINE [Concomitant]
     Indication: CROHN'S DISEASE
  2. MESALAZYN [Concomitant]
     Indication: CROHN'S DISEASE
     Dates: end: 20080101
  3. SULFASALAZYNE [Concomitant]
     Indication: CROHN'S DISEASE
  4. HUMIRA [Suspect]
     Indication: CROHN'S DISEASE
     Route: 058

REACTIONS (2)
  - CROHN'S DISEASE [None]
  - IRON DEFICIENCY ANAEMIA [None]
